FAERS Safety Report 5300521-3 (Version None)
Quarter: 2007Q2

REPORT INFORMATION
  Report Type: 
  Country: None (occurrence: None)
  Receive Date: 20070413
  Receipt Date: 20070413
  Transmission Date: 20071010
  Serious: Yes (Hospitalization)
  Sender: FDA-Public Use
  Company Number: None

PATIENT
  Age: 51 Year
  Sex: Male

DRUGS (9)
  1. IMATINIB MESYLATE [Suspect]
     Indication: GLIOBLASTOMA MULTIFORME
     Dosage: 500 MGBID
     Dates: start: 20061225
  2. PTK [Suspect]
     Indication: GLIOBLASTOMA MULTIFORME
     Dosage: 500MGBID
     Dates: start: 20061219
  3. HYDROXYUREA [Suspect]
     Indication: GLIOBLASTOMA MULTIFORME
     Dosage: 500MGBID
     Dates: start: 20061225
  4. DECADRON [Concomitant]
  5. DILAUDID [Concomitant]
  6. ZOFRAN [Concomitant]
  7. RESTORIL [Concomitant]
  8. LOVENOX [Concomitant]
  9. TRILEPTAL [Concomitant]

REACTIONS (1)
  - CONVULSION [None]
